FAERS Safety Report 8058780-2 (Version None)
Quarter: 2012Q1

REPORT INFORMATION
  Report Type: 
  Country: None (occurrence: None)
  Receive Date: 20120113
  Receipt Date: 20120103
  Transmission Date: 20120608
  Serious: Yes (Other)
  Sender: FDA-Public Use
  Company Number: AUR-APL-2012-00355

PATIENT
  Age: 47 Year
  Sex: Male
  Weight: 93.42 kg

DRUGS (7)
  1. EFFEXOR XR [Suspect]
     Dosage: 150 MG (150 MG, 1 IN 1 D), ORAL
     Route: 048
  2. GLIPIZIDE [Concomitant]
  3. CRESTOR [Concomitant]
  4. METFORMIN HCL [Concomitant]
  5. AMOXICILLIN [Suspect]
     Dosage: 250 MG (125 MG, 2 IN 1 D),
     Dates: start: 20110101
  6. INSULIN [Concomitant]
  7. ACTOS [Concomitant]

REACTIONS (2)
  - COUGH [None]
  - HEADACHE [None]
